FAERS Safety Report 5529260-0 (Version None)
Quarter: 2007Q4

REPORT INFORMATION
  Report Type: 
  Country: None (occurrence: None)
  Receive Date: 20071129
  Receipt Date: 20070911
  Transmission Date: 20080405
  Serious: No
  Sender: FDA-Public Use
  Company Number: A0680925A

PATIENT
  Age: 50 Year
  Sex: Female

DRUGS (5)
  1. BUPROPION HYDROCHLORIDE [Suspect]
     Indication: OBSESSIVE-COMPULSIVE DISORDER
     Dosage: 200MG TWICE PER DAY
     Route: 048
     Dates: start: 20060101
  2. WELLBUTRIN XL [Suspect]
     Indication: OBSESSIVE-COMPULSIVE DISORDER
     Dosage: 150MG PER DAY
     Route: 048
     Dates: start: 20030101
  3. PAXIL CR [Concomitant]
  4. BUSPAR [Concomitant]
  5. IMITREX [Concomitant]

REACTIONS (3)
  - ANGER [None]
  - DRUG INEFFECTIVE [None]
  - IMPATIENCE [None]
